FAERS Safety Report 8400197-2 (Version None)
Quarter: 2012Q2

REPORT INFORMATION
  Report Type: 
  Country: None (occurrence: None)
  Receive Date: 20120531
  Receipt Date: 20120522
  Transmission Date: 20120825
  Serious: Yes (Life-Threatening, Hospitalization)
  Sender: FDA-Public Use
  Company Number: US-JNJFOC-20120518105

PATIENT
  Age: 65 Year
  Sex: Female

DRUGS (2)
  1. HALOPERIDOL [Suspect]
     Indication: PRODUCT USED FOR UNKNOWN INDICATION
     Route: 042
  2. INTERFERON BETA-1B [Concomitant]
     Indication: MULTIPLE SCLEROSIS
     Route: 065

REACTIONS (2)
  - NEUROLEPTIC MALIGNANT SYNDROME [None]
  - DEMENTIA WITH LEWY BODIES [None]
